FAERS Safety Report 6263590-2 (Version None)
Quarter: 2009Q3

REPORT INFORMATION
  Report Type: 
  Country: None (occurrence: None)
  Receive Date: 20090710
  Receipt Date: 20090518
  Transmission Date: 20100115
  Serious: No
  Sender: FDA-Public Use
  Company Number: A0784857A

PATIENT
  Age: 78 Year
  Sex: Female

DRUGS (5)
  1. TYKERB [Suspect]
     Dosage: 4TAB PER DAY
     Route: 048
     Dates: start: 20090401
  2. THYROID MEDICATION [Concomitant]
  3. CHOLESTEROL [Concomitant]
  4. LASIX [Concomitant]
  5. ANTACID TAB [Concomitant]

REACTIONS (6)
  - DIARRHOEA [None]
  - ERUCTATION [None]
  - FLUID RETENTION [None]
  - IMPAIRED GASTRIC EMPTYING [None]
  - MEMORY IMPAIRMENT [None]
  - MUSCULOSKELETAL DISORDER [None]
